FAERS Safety Report 13018258 (Version 1)
Quarter: 2016Q4

REPORT INFORMATION
  Report Type: Spontaneous
  Country: US (occurrence: US)
  Receive Date: 20161212
  Receipt Date: 20161212
  Transmission Date: 20170207
  Serious: No
  Sender: FDA-Public Use
  Company Number: US-CELGENEUS-USA-2016121312

PATIENT
  Age: 72 Year
  Sex: Female

DRUGS (1)
  1. REVLIMID [Suspect]
     Active Substance: LENALIDOMIDE
     Indication: PLASMA CELL MYELOMA RECURRENT
     Dosage: 10MG
     Route: 048
     Dates: start: 201609

REACTIONS (3)
  - Eating disorder [Unknown]
  - Vomiting [Unknown]
  - Gingival swelling [Unknown]

NARRATIVE: CASE EVENT DATE: 20161129
